FAERS Safety Report 7109721-3 (Version None)
Quarter: 2010Q4

REPORT INFORMATION
  Report Type: 
  Country: None (occurrence: None)
  Receive Date: 20101116
  Receipt Date: 20101116
  Transmission Date: 20110411
  Serious: Yes (Hospitalization)
  Sender: FDA-Public Use
  Company Number: None

PATIENT
  Sex: Female
  Weight: 43.1 kg

DRUGS (2)
  1. MULTIHANCE [Suspect]
     Indication: NUCLEAR MAGNETIC RESONANCE IMAGING
     Dosage: IV
     Route: 042
     Dates: start: 20101022, end: 20101022
  2. MULTIHANCE [Suspect]
     Indication: SCAN WITH CONTRAST
     Dosage: IV
     Route: 042
     Dates: start: 20101022, end: 20101022

REACTIONS (8)
  - ANXIETY [None]
  - CONTRAST MEDIA REACTION [None]
  - DYSPNOEA [None]
  - FEELING ABNORMAL [None]
  - FLUSHING [None]
  - NAUSEA [None]
  - PANIC ATTACK [None]
  - VOMITING [None]
